FAERS Safety Report 8373573-4 (Version None)
Quarter: 2012Q2

REPORT INFORMATION
  Report Type: 
  Country: None (occurrence: None)
  Receive Date: 20120521
  Receipt Date: 20120511
  Transmission Date: 20120825
  Serious: Yes (Hospitalization, Other)
  Sender: FDA-Public Use
  Company Number: US-ASTRAZENECA-2012SE24814

PATIENT
  Age: 20995 Day
  Sex: Male

DRUGS (13)
  1. SIMVASTATIN [Concomitant]
     Indication: DYSLIPIDAEMIA
     Dosage: 40 MG
     Route: 048
  2. ASPIRIN [Concomitant]
     Route: 048
     Dates: start: 20110823
  3. BIFERA [Concomitant]
     Indication: ANAEMIA
     Dosage: 22 MG + 25 MCG + 1 MG
     Route: 048
     Dates: start: 20110822
  4. TRICOR [Concomitant]
     Indication: DYSLIPIDAEMIA
     Dosage: 40 MG
     Route: 048
     Dates: start: 20110201
  5. LEVOTHYROXINE SODIUM [Concomitant]
     Indication: HYPOTHYROIDISM
     Dosage: 88 MCG
     Route: 048
  6. NIASPAN [Concomitant]
     Indication: DYSLIPIDAEMIA
     Dosage: 1000 MG
     Route: 048
     Dates: start: 20110201
  7. LISINOPRIL [Concomitant]
     Indication: HYPERTENSION
     Dosage: 20 MG
     Route: 048
  8. ISOSORBIDEMONONITRATE ER [Concomitant]
     Indication: CORONARY ARTERY DISEASE
     Dosage: 30 MG
     Route: 048
  9. ASPIRIN [Concomitant]
     Route: 048
     Dates: end: 20110822
  10. EVEROLIMUS [Concomitant]
  11. AZD6140 [Suspect]
     Indication: CORONARY ARTERY DISEASE
     Route: 048
     Dates: start: 20110830, end: 20120308
  12. METOPROLOL [Concomitant]
     Indication: CORONARY ARTERY DISEASE
     Route: 048
  13. BIFERA [Concomitant]
     Indication: IRON DEFICIENCY
     Dosage: 22 MG + 25 MCG + 1 MG
     Route: 048
     Dates: start: 20110822

REACTIONS (1)
  - HAEMORRHAGIC ANAEMIA [None]
